FAERS Safety Report 9617964 (Version 2)
Quarter: 2013Q4

REPORT INFORMATION
  Report Type: Spontaneous
  Country: BR (occurrence: BR)
  Receive Date: 20131011
  Receipt Date: 20131011
  Transmission Date: 20140711
  Serious: Yes (Other)
  Sender: FDA-Public Use
  Company Number: PHHY2013BR109296

PATIENT
  Age: 66 Year
  Sex: Female
  Weight: 70 kg

DRUGS (7)
  1. MIRTAZAPINE [Suspect]
     Indication: DECREASED APPETITE
     Dosage: 30 MG, QD
     Dates: start: 20130912
  2. ESTRADOT [Concomitant]
     Indication: HORMONE REPLACEMENT THERAPY
     Dosage: 8 25MCG TRANSDERMAL ADHESIVE SYSTEMS (17?-ESTRADIOL)
     Route: 062
  3. RIVOTRIL [Concomitant]
     Indication: SLEEP DISORDER
  4. RIVOTRIL [Concomitant]
     Indication: ANXIETY
  5. SIMVASTATIN [Concomitant]
     Indication: BLOOD CHOLESTEROL
     Dosage: 20 MG, QD
  6. OMEPRAZOLE [Concomitant]
     Dosage: 40 MG, UNK
  7. LOSARTAN [Concomitant]
     Indication: HYPERTENSION
     Dosage: 50 MG, QD

REACTIONS (8)
  - Depression [Recovering/Resolving]
  - Nervousness [Recovering/Resolving]
  - Depressed mood [Recovering/Resolving]
  - Malaise [Unknown]
  - Glossodynia [Unknown]
  - Throat irritation [Unknown]
  - Wrong technique in drug usage process [Unknown]
  - Anxiety [Unknown]
